FAERS Safety Report 23965965 (Version 2)
Quarter: 2024Q2

REPORT INFORMATION
  Report Type: Spontaneous
  Country: DE (occurrence: DE)
  Receive Date: 20240612
  Receipt Date: 20240625
  Transmission Date: 20240716
  Serious: Yes (Other)
  Sender: FDA-Public Use
  Company Number: DE-SA-2024SA173927

PATIENT
  Age: 2 Year
  Sex: Male

DRUGS (4)
  1. ELOCTA [Suspect]
     Active Substance: EFMOROCTOCOG ALFA
     Indication: Factor VIII deficiency
     Dosage: 250 IU, QW
     Route: 065
     Dates: start: 20240528, end: 2024
  2. ELOCTA [Suspect]
     Active Substance: EFMOROCTOCOG ALFA
     Indication: Factor VIII deficiency
     Dosage: 250 IU, QW
     Route: 065
     Dates: start: 20240528, end: 2024
  3. ELOCTA [Suspect]
     Active Substance: EFMOROCTOCOG ALFA
     Dosage: 250 IU, QD
     Route: 065
     Dates: start: 202406, end: 20240609
  4. ELOCTA [Suspect]
     Active Substance: EFMOROCTOCOG ALFA
     Dosage: 250 IU, QD
     Route: 065
     Dates: start: 202406, end: 20240609

REACTIONS (1)
  - Haemarthrosis [Recovered/Resolved]

NARRATIVE: CASE EVENT DATE: 20240101
